FAERS Safety Report 4315790-6 (Version None)
Quarter: 2004Q1

REPORT INFORMATION
  Report Type: 
  Country: None (occurrence: None)
  Receive Date: 20040311
  Receipt Date: 20040311
  Transmission Date: 20041129
  Serious: No
  Sender: FDA-Public Use
  Company Number: None

PATIENT
  Age: 37 Year
  Sex: Female

DRUGS (2)
  1. PROPYLTHIOURACIL [Suspect]
     Dosage: 50 MG TABLET
  2. PURINETHOL [Suspect]
     Dosage: 50 MG TABLET

REACTIONS (1)
  - MEDICATION ERROR [None]
